FAERS Safety Report 20386294 (Version 1)
Quarter: 2022Q1

REPORT INFORMATION
  Report Type: Report from Study
  Country: US (occurrence: US)
  Receive Date: 20220127
  Receipt Date: 20220127
  Transmission Date: 20220423
  Serious: Yes (Hospitalization)
  Sender: FDA-Public Use
  Company Number: US-NOVARTISPH-PHHO2019US000999

PATIENT
  Age: 77 Year
  Sex: Male
  Weight: 138 kg

DRUGS (7)
  1. DIOVAN [Suspect]
     Active Substance: VALSARTAN
     Indication: Cardiac failure
     Dosage: CODE NOT BROKEN
     Route: 048
     Dates: start: 20181106, end: 20190115
  2. SACUBITRIL\VALSARTAN [Suspect]
     Active Substance: SACUBITRIL\VALSARTAN
     Indication: Cardiac failure
     Dosage: CODE NOT BROKEN
     Route: 048
     Dates: start: 20181106, end: 20190115
  3. SACUBITRIL\VALSARTAN [Suspect]
     Active Substance: SACUBITRIL\VALSARTAN
     Indication: Cardiac failure
     Dosage: CODE NOT BROKEN
     Route: 048
     Dates: start: 20181106, end: 20190115
  4. INVESTIGATIONAL PRODUCT [Suspect]
     Active Substance: INVESTIGATIONAL PRODUCT
     Indication: Cardiac failure
     Dosage: CODE NOT BROKEN
     Route: 048
     Dates: start: 20181106, end: 20190115
  5. PLACEBO [Suspect]
     Active Substance: UNSPECIFIED INGREDIENT
     Indication: Cardiac failure
     Dosage: CODE NOT BROKEN
     Route: 048
     Dates: start: 20181106, end: 20190115
  6. LISINOPRIL [Concomitant]
     Active Substance: LISINOPRIL
     Indication: Blood pressure increased
     Dosage: 10 MG, QD
     Route: 048
     Dates: start: 20180614, end: 20190115
  7. METOPROLOL SUCCINATE [Concomitant]
     Active Substance: METOPROLOL SUCCINATE
     Indication: Blood pressure increased
     Dosage: 50 MG, QD
     Route: 048
     Dates: start: 20180614, end: 20190115

REACTIONS (1)
  - Syncope [Recovered/Resolved]

NARRATIVE: CASE EVENT DATE: 20190115
